FAERS Safety Report 21861780 (Version 2)
Quarter: 2023Q4

REPORT INFORMATION
  Report Type: Report from Study
  Country: FR (occurrence: FR)
  Receive Date: 20230113
  Receipt Date: 20231117
  Transmission Date: 20240109
  Serious: Yes (Death, Other)
  Sender: FDA-Public Use
  Company Number: FR-JNJFOC-20221155689

PATIENT
  Age: 77 Year
  Sex: Female

DRUGS (3)
  1. PREDNISONE [Suspect]
     Active Substance: PREDNISONE
     Indication: Plasma cell myeloma
     Dosage: UNK, RECEIVED AS FIRST LINE TREATMENT
     Route: 065
     Dates: end: 20180725
  2. MELPHALAN [Suspect]
     Active Substance: MELPHALAN
     Indication: Plasma cell myeloma
     Dosage: 16 MG/DOSE,4 DOSES/WEEK,0.25 WEEK,1 WEEKS/CYCLE
     Route: 065
     Dates: end: 20180725
  3. VELCADE [Suspect]
     Active Substance: BORTEZOMIB
     Indication: Plasma cell myeloma
     Dosage: 2.5 MG/DOSE, 1 DOSE/WEEK, 4 WEEKS/CYCLE;
     Route: 065
     Dates: end: 20180725

REACTIONS (6)
  - Plasma cell myeloma [Fatal]
  - Sepsis [Fatal]
  - Status epilepticus [Fatal]
  - Cytopenia [Unknown]
  - Intentional product use issue [Unknown]
  - Off label use [Unknown]
